FAERS Safety Report 23205782 (Version 1)
Quarter: 2023Q4

REPORT INFORMATION
  Report Type: Report from Study
  Country: PH (occurrence: PH)
  Receive Date: 20231120
  Receipt Date: 20231120
  Transmission Date: 20240110
  Serious: Yes (Death)
  Sender: FDA-Public Use
  Company Number: PH-OTSUKA-2023_030240

PATIENT
  Sex: Male

DRUGS (1)
  1. TOLVAPTAN [Suspect]
     Active Substance: TOLVAPTAN
     Indication: Product used for unknown indication
     Dosage: 15 MG (1 TABLET), QD
     Route: 048

REACTIONS (1)
  - Death [Fatal]
